FAERS Safety Report 12486970 (Version 1)
Quarter: 2016Q2

REPORT INFORMATION
  Report Type: Spontaneous
  Country: US (occurrence: None)
  Receive Date: 20160621
  Receipt Date: 20160621
  Transmission Date: 20160815
  Serious: Yes (Hospitalization)
  Sender: FDA-Public Use
  Company Number: None

PATIENT
  Age: 71 Year
  Sex: Female
  Weight: 101.8 kg

DRUGS (18)
  1. DIPHENHYDRAMINE. [Concomitant]
     Active Substance: DIPHENHYDRAMINE
  2. METHYLPREDNISOLONE. [Concomitant]
     Active Substance: METHYLPREDNISOLONE
  3. CHOLECALCIFEROL [Concomitant]
     Active Substance: CHOLECALCIFEROL
  4. ASPIRIN. [Concomitant]
     Active Substance: ASPIRIN
  5. EMEND [Concomitant]
     Active Substance: APREPITANT
  6. LIDOCAINE-PRILOCAINE [Concomitant]
     Active Substance: LIDOCAINE\PRILOCAINE
  7. NYSTATIN. [Concomitant]
     Active Substance: NYSTATIN
  8. COMPAZINE [Concomitant]
     Active Substance: PROCHLORPERAZINE MALEATE
  9. DEXAMETHASONE. [Concomitant]
     Active Substance: DEXAMETHASONE
  10. ELOXATIN [Suspect]
     Active Substance: OXALIPLATIN
     Indication: COLORECTAL CANCER METASTATIC
     Route: 042
     Dates: start: 20160615, end: 20160615
  11. CAPECITABINE. [Concomitant]
     Active Substance: CAPECITABINE
  12. LOPERAMIDE [Concomitant]
     Active Substance: LOPERAMIDE
  13. ONDANSETRON [Concomitant]
     Active Substance: ONDANSETRON
  14. PREDNISONE. [Concomitant]
     Active Substance: PREDNISONE
  15. ROPINIROLE. [Concomitant]
     Active Substance: ROPINIROLE
  16. ATENOLOL. [Concomitant]
     Active Substance: ATENOLOL
  17. SIMVASTATIN. [Concomitant]
     Active Substance: SIMVASTATIN
  18. PEPCID [Concomitant]
     Active Substance: FAMOTIDINE

REACTIONS (6)
  - Anaphylactic reaction [None]
  - Stridor [None]
  - Oxygen saturation decreased [None]
  - Chest discomfort [None]
  - Dyspnoea [None]
  - Cough [None]

NARRATIVE: CASE EVENT DATE: 20160615
